FAERS Safety Report 5401394-0 (Version None)
Quarter: 2007Q3

REPORT INFORMATION
  Report Type: 
  Country: None (occurrence: None)
  Receive Date: 20070731
  Receipt Date: 20070725
  Transmission Date: 20080115
  Serious: Yes (Other)
  Sender: FDA-Public Use
  Company Number: PHNU2007DE02644

PATIENT

DRUGS (6)
  1. ZOMETA [Suspect]
     Indication: METASTASES TO BONE
     Dosage: 4 MG, UNK
     Route: 042
     Dates: start: 20030201
  2. ENALAPRIL MALEATE [Concomitant]
     Dosage: 5 MG, QD
     Route: 065
  3. ANASTROZOLE [Concomitant]
     Dosage: 1 MG, QD
     Route: 065
  4. OMEPRAZOLE [Concomitant]
     Route: 065
  5. VOLTAREN RESINAT ^NOVARTIS^ [Concomitant]
     Dosage: 2 TBL DAILY
     Route: 048
  6. DHC [Concomitant]
     Dosage: 120 MG, QD
     Route: 065

REACTIONS (7)
  - BIOPSY SITE UNSPECIFIED ABNORMAL [None]
  - IMPAIRED HEALING [None]
  - OSTECTOMY [None]
  - OSTEITIS [None]
  - OSTEOMYELITIS [None]
  - OSTEONECROSIS [None]
  - TOOTH EXTRACTION [None]
